FAERS Safety Report 14500013 (Version 1)
Quarter: 2018Q1

REPORT INFORMATION
  Report Type: Not Available
  Country: US (occurrence: US)
  Receive Date: 20180207
  Receipt Date: 20180207
  Transmission Date: 20180509
  Serious: No
  Sender: FDA-Public Use
  Company Number: US-FOUNDATIONCONSUMERHC-2017-US-013615

PATIENT
  Age: 20 Year
  Sex: Female
  Weight: 72.58 kg

DRUGS (2)
  1. TAKE ACTION [Suspect]
     Active Substance: LEVONORGESTREL
     Dosage: 1 TAB PO
     Route: 048
     Dates: start: 20171112, end: 20171112
  2. TAKE ACTION [Suspect]
     Active Substance: LEVONORGESTREL
     Dosage: 1 TAB PO
     Route: 048
     Dates: start: 20170915, end: 20170915

REACTIONS (9)
  - Depression [Recovered/Resolved]
  - Constipation [Recovered/Resolved]
  - Nausea [Recovered/Resolved]
  - Mood altered [Recovered/Resolved]
  - Breast pain [Recovered/Resolved]
  - Fatigue [Recovered/Resolved]
  - Back pain [Recovered/Resolved]
  - Menstruation delayed [Unknown]
  - Vaginal haemorrhage [Recovered/Resolved]

NARRATIVE: CASE EVENT DATE: 20170915
